FAERS Safety Report 7403626-6 (Version None)
Quarter: 2011Q2

REPORT INFORMATION
  Report Type: 
  Country: None (occurrence: None)
  Receive Date: 20110408
  Receipt Date: 20110329
  Transmission Date: 20111010
  Serious: Yes (Hospitalization)
  Sender: FDA-Public Use
  Company Number: PHHO2011DE05556

PATIENT
  Sex: Female
  Weight: 63 kg

DRUGS (4)
  1. MYCOPHENOLATE MOFETIL [Suspect]
     Indication: LUNG TRANSPLANT
     Dosage: 2000 MG/DAY
     Route: 048
     Dates: start: 20090401, end: 20100910
  2. MYCOPHENOLATE MOFETIL [Suspect]
     Dosage: 500 MG/DAY
     Route: 048
     Dates: start: 20100922, end: 20101003
  3. SANDIMMUNE [Suspect]
     Indication: LUNG TRANSPLANT
  4. MYCOPHENOLATE MOFETIL [Suspect]
     Dosage: 2000 MG/DAY
     Route: 048
     Dates: start: 20101004

REACTIONS (2)
  - PNEUMONIA CYTOMEGALOVIRAL [None]
  - ESCHERICHIA INFECTION [None]
